FAERS Safety Report 5604361-7 (Version None)
Quarter: 2008Q1

REPORT INFORMATION
  Report Type: 
  Country: None (occurrence: None)
  Receive Date: 20080123
  Receipt Date: 20080123
  Transmission Date: 20080703
  Serious: No
  Sender: FDA-Public Use
  Company Number: None

PATIENT
  Age: 59 Year
  Sex: Female
  Weight: 68.0396 kg

DRUGS (1)
  1. CHANTIX [Suspect]
     Indication: SMOKING CESSATION THERAPY
     Dosage: 5 MG TWICE DAILY PO
     Route: 048
     Dates: start: 20071201, end: 20071231

REACTIONS (3)
  - BLOOD PRESSURE FLUCTUATION [None]
  - SOMNOLENCE [None]
  - STOMACH DISCOMFORT [None]
